FAERS Safety Report 8324763-8 (Version None)
Quarter: 2012Q2

REPORT INFORMATION
  Report Type: 
  Country: None (occurrence: None)
  Receive Date: 20120501
  Receipt Date: 20120423
  Transmission Date: 20120825
  Serious: Yes (Other)
  Sender: FDA-Public Use
  Company Number: PHHY2012BR035991

PATIENT
  Sex: Male

DRUGS (1)
  1. EXFORGE [Suspect]
     Indication: HYPERTENSION
     Dosage: 1 DF (320 MG VALSARTAN AND 5 MG AMLODIPINE) DAILY
     Route: 048

REACTIONS (2)
  - RENAL DISORDER [None]
  - PROTEIN URINE [None]
